FAERS Safety Report 20219687 (Version 2)
Quarter: 2021Q4

REPORT INFORMATION
  Report Type: Spontaneous
  Country: US (occurrence: US)
  Receive Date: 20211222
  Receipt Date: 20211222
  Transmission Date: 20220303
  Serious: Yes (Death, Hospitalization, Other)
  Sender: FDA-Public Use
  Company Number: US-GILEAD-2021-0560760

PATIENT
  Age: 80 Year
  Sex: Male

DRUGS (1)
  1. VEKLURY [Suspect]
     Active Substance: REMDESIVIR
     Indication: Product used for unknown indication
     Dosage: UNK
     Route: 065

REACTIONS (8)
  - Death [Fatal]
  - Thrombosis [Unknown]
  - Illness [Unknown]
  - Pulse absent [Unknown]
  - Blood pressure decreased [Unknown]
  - Oxygen saturation decreased [Unknown]
  - Recalled product administered [Unknown]
  - Recalled product [Unknown]
